FAERS Safety Report 5094148-9 (Version None)
Quarter: 2006Q3

REPORT INFORMATION
  Report Type: 
  Country: None (occurrence: None)
  Receive Date: 20060831
  Receipt Date: 20060822
  Transmission Date: 20061208
  Serious: Yes (Other)
  Sender: FDA-Public Use
  Company Number: US-JNJFOC-20060805415

PATIENT
  Age: 91 Year
  Sex: Male

DRUGS (8)
  1. RAZADYNE ER [Suspect]
     Route: 048
  2. RAZADYNE ER [Suspect]
     Indication: DEMENTIA ALZHEIMER'S TYPE
     Route: 048
  3. SYNTHROID [Concomitant]
     Indication: HYPOTHYROIDISM
  4. DIATX ZN [Concomitant]
     Indication: NUTRITIONAL SUPPORT
  5. CILOSTAVOL [Concomitant]
     Indication: PERIPHERAL VASCULAR DISORDER
  6. FLOMAX [Concomitant]
     Indication: BENIGN PROSTATIC HYPERPLASIA
  7. NAMENDA [Concomitant]
     Indication: DEMENTIA ALZHEIMER'S TYPE
  8. GLYCOLAX [Concomitant]
     Indication: LAXATIVE SUPPORTIVE CARE

REACTIONS (3)
  - DRUG PRESCRIBING ERROR [None]
  - MEDICATION ERROR [None]
  - NO ADVERSE DRUG EFFECT [None]
